FAERS Safety Report 8578877-8 (Version None)
Quarter: 2012Q3

REPORT INFORMATION
  Report Type: 
  Country: None (occurrence: None)
  Receive Date: 20120808
  Receipt Date: 20120724
  Transmission Date: 20120928
  Serious: No
  Sender: FDA-Public Use
  Company Number: US-ASTRAZENECA-2012SE52091

PATIENT
  Age: 43 Year
  Sex: Female
  Weight: 113.4 kg

DRUGS (1)
  1. ATACAND HCT [Suspect]
     Indication: HYPERTENSION
     Dosage: 16/ 12.5 MG AT NIGHT
     Route: 048
     Dates: start: 20120720

REACTIONS (3)
  - DIZZINESS [None]
  - BALANCE DISORDER [None]
  - DRUG INTOLERANCE [None]
